FAERS Safety Report 7169800-1 (Version None)
Quarter: 2010Q4

REPORT INFORMATION
  Report Type: 
  Country: None (occurrence: None)
  Receive Date: 20101217
  Receipt Date: 20101213
  Transmission Date: 20110411
  Serious: Yes (Death)
  Sender: FDA-Public Use
  Company Number: CN-JNJFOC-20101204148

PATIENT
  Age: 8 Month

DRUGS (2)
  1. CONCENTRATED TYLENOL INFANT DROPS [Suspect]
     Route: 048
  2. CONCENTRATED TYLENOL INFANT DROPS [Suspect]
     Indication: PYREXIA
     Dosage: GIVEN LESS THAN 1ML (1.5 G/15 ML)
     Route: 048

REACTIONS (2)
  - DYSPNOEA [None]
  - SYNCOPE [None]
